FAERS Safety Report 24713999 (Version 1)
Quarter: 2024Q4

REPORT INFORMATION
  Report Type: Spontaneous
  Country: US (occurrence: US)
  Receive Date: 20241209
  Receipt Date: 20241209
  Transmission Date: 20250115
  Serious: No
  Sender: REGENERON
  Company Number: US-REGENERON PHARMACEUTICALS, INC.-2024-089564

PATIENT

DRUGS (3)
  1. EYLEA [Suspect]
     Active Substance: AFLIBERCEPT
     Indication: Product used for unknown indication
     Dosage: UNK; FORMULATION: UNKNOWN
     Dates: start: 202303
  2. ARTIFICIAL TEARS [CARMELLOSE SODIUM] [Concomitant]
     Indication: Product used for unknown indication
     Dosage: UNK
  3. BETADINE [Concomitant]
     Active Substance: POVIDONE-IODINE
     Indication: Product used for unknown indication
     Dosage: UNK

REACTIONS (3)
  - Eye discharge [Unknown]
  - Eye irritation [Unknown]
  - Eye pain [Unknown]
